FAERS Safety Report 5073579-7 (Version None)
Quarter: 2006Q3

REPORT INFORMATION
  Report Type: 
  Country: None (occurrence: None)
  Receive Date: 20060808
  Receipt Date: 20060126
  Transmission Date: 20061208
  Serious: Yes (Other)
  Sender: FDA-Public Use
  Company Number: US-GLAXOSMITHKLINE-A0591786A

PATIENT
  Age: 16 Year
  Sex: Female

DRUGS (6)
  1. COMBIVIR [Suspect]
     Indication: HIV INFECTION
     Route: 048
     Dates: start: 20051209, end: 20060419
  2. NELFINAVIR [Concomitant]
     Indication: HIV INFECTION
     Dosage: 1250MG TWICE PER DAY
     Route: 048
     Dates: start: 20051209, end: 20060419
  3. VIRACEPT [Concomitant]
     Indication: HIV INFECTION
     Dosage: 2500MG PER DAY
     Route: 048
     Dates: start: 20051209
  4. ZIDOVUDINE [Concomitant]
     Indication: HIV INFECTION
     Route: 042
     Dates: start: 20060419, end: 20060419
  5. PRENATAL VITAMINS [Concomitant]
  6. IRON [Concomitant]

REACTIONS (6)
  - CHLAMYDIAL INFECTION [None]
  - DRUG EXPOSURE DURING PREGNANCY [None]
  - TRICHOMONIASIS [None]
  - ULTRASOUND SCAN ABNORMAL [None]
  - URINARY TRACT INFECTION [None]
  - VENTRICULAR SEPTAL DEFECT [None]
